FAERS Safety Report 25607814 (Version 1)
Quarter: 2025Q3

REPORT INFORMATION
  Report Type: Spontaneous
  Country: EU (occurrence: EU)
  Receive Date: 20250725
  Receipt Date: 20250725
  Transmission Date: 20251021
  Serious: Yes (Life-Threatening, Hospitalization, Other)
  Sender: MYLAN
  Company Number: None

PATIENT
  Age: 18 Year
  Sex: Female

DRUGS (12)
  1. ACETAMINOPHEN [Suspect]
     Active Substance: ACETAMINOPHEN
     Indication: Product used for unknown indication
     Dates: start: 20250707, end: 20250707
  2. ACETAMINOPHEN [Suspect]
     Active Substance: ACETAMINOPHEN
     Route: 048
     Dates: start: 20250707, end: 20250707
  3. ACETAMINOPHEN [Suspect]
     Active Substance: ACETAMINOPHEN
     Route: 048
     Dates: start: 20250707, end: 20250707
  4. ACETAMINOPHEN [Suspect]
     Active Substance: ACETAMINOPHEN
     Dates: start: 20250707, end: 20250707
  5. FLUOXETINE HYDROCHLORIDE [Concomitant]
     Active Substance: FLUOXETINE HYDROCHLORIDE
  6. FLUOXETINE HYDROCHLORIDE [Concomitant]
     Active Substance: FLUOXETINE HYDROCHLORIDE
     Route: 065
  7. FLUOXETINE HYDROCHLORIDE [Concomitant]
     Active Substance: FLUOXETINE HYDROCHLORIDE
     Route: 065
  8. FLUOXETINE HYDROCHLORIDE [Concomitant]
     Active Substance: FLUOXETINE HYDROCHLORIDE
  9. EN [Concomitant]
     Active Substance: DELORAZEPAM
  10. EN [Concomitant]
     Active Substance: DELORAZEPAM
     Route: 065
  11. EN [Concomitant]
     Active Substance: DELORAZEPAM
     Route: 065
  12. EN [Concomitant]
     Active Substance: DELORAZEPAM

REACTIONS (3)
  - Drug abuse [Recovered/Resolved]
  - Sopor [Recovered/Resolved]
  - Depressed mood [Recovered/Resolved]

NARRATIVE: CASE EVENT DATE: 20250707
